FAERS Safety Report 4888659-6 (Version None)
Quarter: 2005Q4

REPORT INFORMATION
  Report Type: 
  Country: None (occurrence: None)
  Receive Date: 20051215
  Receipt Date: 20050127
  Transmission Date: 20060501
  Serious: Yes (Other)
  Sender: FDA-Public Use
  Company Number: 2005007792

PATIENT
  Sex: Female
  Weight: 68.0396 kg

DRUGS (2)
  1. BEXTRA [Suspect]
     Indication: OSTEOARTHRITIS
     Dosage: 20 MG (1 IN 1 D),ORAL
     Route: 048
     Dates: start: 20020101, end: 20041201
  2. ANDROGENS AND FEMALE SEX HORMONES IN COMB (ANDROGENS AND FEMALE SEX HO [Concomitant]

REACTIONS (1)
  - TIBIA FRACTURE [None]
